FAERS Safety Report 7794426-6 (Version None)
Quarter: 2011Q4

REPORT INFORMATION
  Report Type: 
  Country: None (occurrence: None)
  Receive Date: 20111004
  Receipt Date: 20111004
  Transmission Date: 20120403
  Serious: Yes (Other)
  Sender: FDA-Public Use
  Company Number: None

PATIENT
  Age: 33 Year
  Sex: Female
  Weight: 51.709 kg

DRUGS (1)
  1. DESIPRAMINE HYDROCHLORIDE [Suspect]
     Indication: MIGRAINE PROPHYLAXIS
     Dosage: 25MG
     Route: 048
     Dates: start: 20111003, end: 20111003

REACTIONS (4)
  - FEELING HOT [None]
  - FLUSHING [None]
  - NAUSEA [None]
  - PRURITUS [None]
